FAERS Safety Report 5871829-8 (Version None)
Quarter: 2008Q3

REPORT INFORMATION
  Report Type: 
  Country: None (occurrence: None)
  Receive Date: 20080904
  Receipt Date: 20080904
  Transmission Date: 20090109
  Serious: No
  Sender: FDA-Public Use
  Company Number: None

PATIENT
  Sex: Male
  Weight: 86.3 kg

DRUGS (4)
  1. FLUOROURACIL [Suspect]
     Dosage: 5136 MG
  2. CISPLATIN [Suspect]
     Dosage: 128 MG
  3. ERBITUX [Suspect]
     Dosage: 1920 MG
  4. ELLENCE [Suspect]
     Dosage: 107 MG

REACTIONS (2)
  - BLOOD SODIUM DECREASED [None]
  - NEUTROPHIL COUNT DECREASED [None]
